FAERS Safety Report 14610772 (Version 2)
Quarter: 2018Q1

REPORT INFORMATION
  Report Type: Spontaneous
  Country: BR (occurrence: BR)
  Receive Date: 20180308
  Receipt Date: 20180327
  Transmission Date: 20180509
  Serious: Yes (Death, Hospitalization, Other)
  Sender: FDA-Public Use
  Company Number: BR-AMGEN-BRASP2018030770

PATIENT
  Age: 89 Year
  Sex: Female

DRUGS (1)
  1. ENBREL [Suspect]
     Active Substance: ETANERCEPT
     Indication: PRODUCT USED FOR UNKNOWN INDICATION
     Dosage: UNK
     Route: 065

REACTIONS (5)
  - Musculoskeletal disorder [Unknown]
  - Death [Fatal]
  - Malaise [Unknown]
  - Fall [Unknown]
  - Osteoporosis [Unknown]

NARRATIVE: CASE EVENT DATE: 2017
